FAERS Safety Report 11867161 (Version 1)
Quarter: 2015Q4

REPORT INFORMATION
  Report Type: Spontaneous
  Country: US (occurrence: None)
  Receive Date: 20151223
  Receipt Date: 20151223
  Transmission Date: 20160305
  Serious: Yes (Hospitalization)
  Sender: FDA-Public Use
  Company Number: None

PATIENT
  Age: 50 Year
  Sex: Male
  Weight: 136 kg

DRUGS (16)
  1. ZAROXOLYN [Concomitant]
     Active Substance: METOLAZONE
  2. ALDACTONE [Concomitant]
     Active Substance: SPIRONOLACTONE
  3. ALBUTEROL. [Concomitant]
     Active Substance: ALBUTEROL
  4. PROTONIX [Concomitant]
     Active Substance: PANTOPRAZOLE SODIUM
  5. HARVONI [Suspect]
     Active Substance: LEDIPASVIR\SOFOSBUVIR
     Indication: HEPATITIS C
     Dosage: 400/90MG 1X DAILY ORAL
     Route: 048
     Dates: start: 20150708, end: 20151002
  6. DELTASONE [Concomitant]
     Active Substance: PREDNISONE
  7. NEXIUM [Concomitant]
     Active Substance: ESOMEPRAZOLE MAGNESIUM
  8. HUMALOG [Concomitant]
     Active Substance: INSULIN LISPRO
  9. LANTUS [Concomitant]
     Active Substance: INSULIN GLARGINE
  10. LASIX [Concomitant]
     Active Substance: FUROSEMIDE
  11. HYTRIN [Concomitant]
     Active Substance: TERAZOSIN HYDROCHLORIDE
  12. DESYREL [Concomitant]
     Active Substance: TRAZODONE HYDROCHLORIDE
  13. LACTULOSE. [Concomitant]
     Active Substance: LACTULOSE
  14. GABAPENTIN. [Concomitant]
     Active Substance: GABAPENTIN
  15. CORGARD [Concomitant]
     Active Substance: NADOLOL
  16. ADVAIR HFA [Concomitant]
     Active Substance: FLUTICASONE PROPIONATE\SALMETEROL XINAFOATE

REACTIONS (8)
  - Dehydration [None]
  - Hyperglycaemia [None]
  - Vomiting [None]
  - Acute kidney injury [None]
  - Nausea [None]
  - Hyponatraemia [None]
  - Chronic obstructive pulmonary disease [None]
  - Acidosis [None]

NARRATIVE: CASE EVENT DATE: 20150917
